FAERS Safety Report 16735473 (Version 5)
Quarter: 2023Q4

REPORT INFORMATION
  Report Type: Report from Study
  Country: JP (occurrence: JP)
  Receive Date: 20190823
  Receipt Date: 20231003
  Transmission Date: 20240109
  Serious: Yes (Death, Hospitalization)
  Sender: FDA-Public Use
  Company Number: JP-PFIZER INC-2019355754

PATIENT
  Age: 72 Year
  Sex: Male
  Weight: 58.6 kg

DRUGS (14)
  1. LORBRENA [Suspect]
     Active Substance: LORLATINIB
     Indication: Non-small cell lung cancer
     Dosage: 100 MG, 1X/DAY
     Dates: start: 20190605, end: 20190613
  2. LORBRENA [Suspect]
     Active Substance: LORLATINIB
     Dosage: 50 MG, 1X/DAY
     Dates: start: 20190618, end: 20191125
  3. BELSOMRA [Concomitant]
     Active Substance: SUVOREXANT
     Indication: Nervous system disorder
     Dosage: UNK
     Route: 048
     Dates: start: 20190613
  4. VONOPRAZAN FUMARATE [Concomitant]
     Active Substance: VONOPRAZAN FUMARATE
     Dosage: 1 TABLET, 1X/DAY, MORNING
     Route: 048
  5. CALCIUM CARBONATE\CHOLECALCIFEROL\MAGNESIUM CARBONATE [Concomitant]
     Active Substance: CALCIUM CARBONATE\CHOLECALCIFEROL\MAGNESIUM CARBONATE
     Dosage: 2 TABLETS
     Route: 048
  6. ROSUVASTATIN CALCIUM [Concomitant]
     Active Substance: ROSUVASTATIN CALCIUM
     Dosage: 1 TABLET, 1X/DAY, MORNING
     Route: 048
  7. ASPIRIN [Concomitant]
     Active Substance: ASPIRIN
     Dosage: 1 TABLET, 1X/DAY, MORNING
     Route: 048
  8. SULFAMETHOXAZOLE\TRIMETHOPRIM [Concomitant]
     Active Substance: SULFAMETHOXAZOLE\TRIMETHOPRIM
     Dosage: 1 TABLET, 1X/DAY, MORNING
     Route: 048
  9. MAGNESIUM OXIDE [Concomitant]
     Active Substance: MAGNESIUM OXIDE
     Dosage: 1 TABLET, 3X/DAY
     Route: 048
  10. PREDNISOLONE [Concomitant]
     Active Substance: PREDNISOLONE
     Dosage: UNK
     Route: 048
  11. PREDNISOLONE [Concomitant]
     Active Substance: PREDNISOLONE
     Dosage: UNK
     Route: 048
  12. LASIX [Concomitant]
     Active Substance: FUROSEMIDE
     Dosage: 1 TABLET, 1X/DAY, MORNING
     Route: 048
  13. TORSEMIDE [Concomitant]
     Active Substance: TORSEMIDE
     Dosage: 1 TABLET, 1X/DAY, MORNING
     Route: 048
  14. TRAZODONE [Concomitant]
     Active Substance: TRAZODONE HYDROCHLORIDE
     Indication: Nervous system disorder
     Dosage: UNK
     Route: 048
     Dates: start: 20190613

REACTIONS (2)
  - Neoplasm progression [Fatal]
  - Restlessness [Recovering/Resolving]

NARRATIVE: CASE EVENT DATE: 20190609
